FAERS Safety Report 15734298 (Version 1)
Quarter: 2018Q4

REPORT INFORMATION
  Report Type: Spontaneous
  Country: US (occurrence: US)
  Receive Date: 20181218
  Receipt Date: 20181218
  Transmission Date: 20190205
  Serious: Yes (Other)
  Sender: FDA-Public Use
  Company Number: US-PFIZER INC-2018519604

PATIENT
  Age: 73 Year
  Sex: Male
  Weight: 93.5 kg

DRUGS (21)
  1. TYLENOL [Concomitant]
     Active Substance: ACETAMINOPHEN
     Indication: HEADACHE
  2. NITROSTAT [Concomitant]
     Active Substance: NITROGLYCERIN
     Indication: ANGINA PECTORIS
     Dosage: 0.4 MG, AS NEEDED [DISSOLVE 1 TABLET UNDER THE TONGUE EVERY 5 MINUTES AS NEEDED FOR ANGINA UP TO 3]
     Route: 060
  3. PRANDIN [Concomitant]
     Active Substance: REPAGLINIDE
     Dosage: 0.5 MG, 3X/DAY[TAKE 0.5 MG BY MOUTH 3 TIMES DAILY BEFORE MEALS]
     Route: 048
  4. TYLENOL [Concomitant]
     Active Substance: ACETAMINOPHEN
     Indication: PAIN
  5. MIRALAX [Concomitant]
     Active Substance: POLYETHYLENE GLYCOL 3350
     Dosage: 17 G, 1X/DAY
     Route: 048
  6. LIPITOR [Concomitant]
     Active Substance: ATORVASTATIN CALCIUM
     Dosage: 0.5 MG, 1X/DAY
     Route: 048
  7. COREG [Concomitant]
     Active Substance: CARVEDILOL
     Dosage: 6.25 MG, 2X/DAY [TAKE 1 TABLET BY MOUTH 2 TIMES DAILY WITH MORNING AND EVENING MEAL ]
     Route: 048
  8. METAMUCIL THERAPY FOR REGULARITY [Concomitant]
     Active Substance: PSYLLIUM HUSK
     Dosage: UNK UNK, 1X/DAY [TAKE 1 PACKET BY MOUTH ONCE DAILY]
     Route: 048
  9. AMBIEN [Concomitant]
     Active Substance: ZOLPIDEM TARTRATE
     Indication: INSOMNIA
     Dosage: 10 MG, AS NEEDED [TAKE 1 TAB BY MOUTH NIGHTLY AS NEEDED FOR INSOMNIA.]
     Route: 048
  10. TYLENOL [Concomitant]
     Active Substance: ACETAMINOPHEN
     Indication: PYREXIA
     Dosage: UNK, AS NEEDED(1-2 TABS BY MOUTH EVERY 4 HOURS AS NEEDED)
     Route: 048
  11. BUMEX [Concomitant]
     Active Substance: BUMETANIDE
     Dosage: 6 MG, DAILY [TAKE 2 TABLETS (4 MG) IN THE MORNING AND 1 TABLET (2 MG) IN THE AFTERNOON]
  12. PRILOSEC [Concomitant]
     Active Substance: OMEPRAZOLE MAGNESIUM
     Dosage: 20 MG, 1X/DAY
     Route: 048
  13. KLOR-CON M20 [Concomitant]
     Active Substance: POTASSIUM CHLORIDE
     Dosage: 40 MEQ, 1X/DAY
  14. ALDACTONE [Concomitant]
     Active Substance: SPIRONOLACTONE
     Indication: CARDIAC FAILURE CONGESTIVE
     Dosage: 25 MG, 2X/DAY
     Route: 048
  15. DOLOBID [Concomitant]
     Active Substance: DIFLUNISAL
     Dosage: 500 MG, 2X/DAY
     Route: 048
  16. COLACE [Concomitant]
     Active Substance: DOCUSATE SODIUM
     Dosage: 100 MG, 1X/DAY
     Route: 048
  17. LANTUS [Concomitant]
     Active Substance: INSULIN GLARGINE
     Dosage: 10 IU, 1X/DAY
     Route: 058
  18. THERAGRAN [ASCORBIC ACID;BIOTIN;CALCIUM PANTOTHENATE;CYANOCOBALAMIN;ER [Concomitant]
     Dosage: 1 DF, DAILY[TAKE 1 TAB BY MOUTH DAILY WITH FOOD]
     Route: 048
  19. CIPROFLOXACIN. [Suspect]
     Active Substance: CIPROFLOXACIN
     Dosage: UNK
  20. ASPIRIN [ACETYLSALICYLIC ACID] [Concomitant]
     Active Substance: ASPIRIN
     Dosage: 81 MG, 1X/DAY
     Route: 048
  21. DESYREL [Concomitant]
     Active Substance: TRAZODONE HYDROCHLORIDE
     Dosage: 50 MG, AS NEEDED [TAKE 50 MG BY MOUTH NIGHTLY AS NEEDED.]
     Route: 048

REACTIONS (9)
  - Atrial fibrillation [Unknown]
  - Cardiac amyloidosis [Unknown]
  - Drug ineffective [Unknown]
  - Left ventricular hypertrophy [Unknown]
  - Coronary artery disease [Unknown]
  - Fatigue [Unknown]
  - Essential hypertension [Unknown]
  - Dyspnoea [Unknown]
  - Weight increased [Unknown]
